FAERS Safety Report 6023530-8 (Version None)
Quarter: 2008Q4

REPORT INFORMATION
  Report Type: 
  Country: None (occurrence: None)
  Receive Date: 20081230
  Receipt Date: 20081219
  Transmission Date: 20090506
  Serious: Yes (Other)
  Sender: FDA-Public Use
  Company Number: PHHY2008CN30455

PATIENT
  Age: 52 Year
  Sex: Male

DRUGS (1)
  1. SEBIVO [Suspect]
     Indication: HEPATITIS B
     Dosage: 600 MG, QD
     Route: 048

REACTIONS (7)
  - ABDOMINAL DISCOMFORT [None]
  - DECREASED APPETITE [None]
  - DIARRHOEA [None]
  - HEADACHE [None]
  - HEPATIC NEOPLASM [None]
  - SURGERY [None]
  - WOUND COMPLICATION [None]
